FAERS Safety Report 7024492-7 (Version None)
Quarter: 2010Q4

REPORT INFORMATION
  Report Type: 
  Country: None (occurrence: None)
  Receive Date: 20101001
  Receipt Date: 20100928
  Transmission Date: 20110411
  Serious: Yes (Life-Threatening, Hospitalization)
  Sender: FDA-Public Use
  Company Number: A0861796A

PATIENT
  Age: 8 Year
  Sex: Male

DRUGS (3)
  1. LAMICTAL [Suspect]
     Indication: BIPOLAR DISORDER
     Route: 048
     Dates: start: 20100501
  2. UNKNOWN MEDICATION [Concomitant]
     Indication: BIPOLAR DISORDER
  3. UNKNOWN MEDICATION [Concomitant]

REACTIONS (6)
  - BLINDNESS [None]
  - BLISTER [None]
  - DEAFNESS [None]
  - SCAR [None]
  - SKIN GRAFT [None]
  - STEVENS-JOHNSON SYNDROME [None]
